FAERS Safety Report 15325462 (Version 3)
Quarter: 2018Q4

REPORT INFORMATION
  Report Type: Spontaneous
  Country: JP (occurrence: JP)
  Receive Date: 20180828
  Receipt Date: 20181003
  Transmission Date: 20190204
  Serious: Yes (Death, Other)
  Sender: FDA-Public Use
  Company Number: JP-GLAXOSMITHKLINE-JP2018JPN153258

PATIENT
  Age: 14 Year
  Sex: Male
  Weight: 50 kg

DRUGS (9)
  1. SERETIDE [Suspect]
     Active Substance: FLUTICASONE PROPIONATE\SALMETEROL XINAFOATE
     Indication: ASTHMA
     Dosage: 1 DF, BID
     Route: 055
     Dates: start: 20180601, end: 20180614
  2. ALLERMIST [Suspect]
     Active Substance: FLUTICASONE FUROATE
     Indication: RHINITIS ALLERGIC
     Dosage: 55 ?G, QD
     Route: 045
     Dates: start: 20180601, end: 20180614
  3. TALION OD [Concomitant]
     Active Substance: BEPOTASTINE BESILATE
     Indication: RHINITIS ALLERGIC
     Dosage: 10 MG, BID
     Route: 048
     Dates: start: 20180601, end: 20180614
  4. KLARICID TABLETS [Concomitant]
     Active Substance: CLARITHROMYCIN
     Dosage: 400 MG, BID
     Route: 048
     Dates: start: 20180601, end: 20180607
  5. MUCOSOLVAN (AMBROXOL HYDROCHLORIDE) [Concomitant]
     Active Substance: AMBROXOL HYDROCHLORIDE
     Indication: PRODUCTIVE COUGH
     Dosage: 15 MG, TID
     Route: 048
     Dates: start: 20180601, end: 20180614
  6. ASTOMIN TABLETS [Concomitant]
     Indication: COUGH
     Dosage: 10 MG, TID
     Route: 048
     Dates: start: 20180601, end: 20180614
  7. ALLERMIST [Suspect]
     Active Substance: FLUTICASONE FUROATE
     Indication: COUGH
  8. SERETIDE [Suspect]
     Active Substance: FLUTICASONE PROPIONATE\SALMETEROL XINAFOATE
     Indication: COUGH
  9. SINGULAIR CHEWABLE TABLETS [Concomitant]
     Indication: ASTHMA
     Dosage: 5 MG, QD
     Route: 048
     Dates: start: 20180601, end: 20180614

REACTIONS (8)
  - Depression [Unknown]
  - Headache [Unknown]
  - Memory impairment [Unknown]
  - Cognitive disorder [Unknown]
  - Death [Fatal]
  - Heat illness [Unknown]
  - Aggression [Unknown]
  - Irritability [Unknown]

NARRATIVE: CASE EVENT DATE: 2018
